FAERS Safety Report 4712133-0 (Version None)
Quarter: 2005Q2

REPORT INFORMATION
  Report Type: 
  Country: None (occurrence: None)
  Receive Date: 20050629
  Receipt Date: 20050325
  Transmission Date: 20051028
  Serious: No
  Sender: FDA-Public Use
  Company Number: 05P-163-0295295-00

PATIENT
  Age: 64 Year
  Sex: Male

DRUGS (4)
  1. HUMIRA [Suspect]
     Indication: RHEUMATOID ARTHRITIS
     Dates: start: 20050302
  2. ZOCOR [Concomitant]
  3. LOTREL [Concomitant]
  4. LEFLUNOMIDE [Concomitant]

REACTIONS (1)
  - DRUG INEFFECTIVE [None]
